FAERS Safety Report 25555498 (Version 1)
Quarter: 2025Q3

REPORT INFORMATION
  Report Type: Spontaneous
  Country: US (occurrence: US)
  Receive Date: 20250715
  Receipt Date: 20250715
  Transmission Date: 20251021
  Serious: No
  Sender: NOVO NORDISK
  Company Number: US-NOVOPROD-1243287

PATIENT
  Age: 71 Year
  Sex: Male

DRUGS (1)
  1. OZEMPIC [Suspect]
     Active Substance: SEMAGLUTIDE
     Indication: Product used for unknown indication
     Route: 058
     Dates: start: 20240609

REACTIONS (4)
  - Pruritus [Unknown]
  - Skin irritation [Unknown]
  - Injection site vesicles [Unknown]
  - Off label use [Unknown]

NARRATIVE: CASE EVENT DATE: 20240609
